FAERS Safety Report 10253517 (Version 1)
Quarter: 2014Q2

REPORT INFORMATION
  Report Type: Spontaneous
  Country: US (occurrence: US)
  Receive Date: 20140623
  Receipt Date: 20140623
  Transmission Date: 20141212
  Serious: No
  Sender: FDA-Public Use
  Company Number: US-TEVA-488295USA

PATIENT
  Age: 51 Year
  Sex: Male
  Weight: 90.8 kg

DRUGS (2)
  1. NUVIGIL [Suspect]
     Indication: SLEEP DISORDER
  2. ADVIL [Concomitant]
     Indication: PAIN

REACTIONS (3)
  - Blood alkaline phosphatase increased [Not Recovered/Not Resolved]
  - Incorrect dosage administered [Unknown]
  - Off label use [Unknown]
